FAERS Safety Report 23125731 (Version 1)
Quarter: 2023Q4

REPORT INFORMATION
  Report Type: Spontaneous
  Country: PT (occurrence: None)
  Receive Date: 20231030
  Receipt Date: 20231030
  Transmission Date: 20240110
  Serious: Yes (Life-Threatening, Other)
  Sender: FDA-Public Use
  Company Number: 2023A245380

PATIENT

DRUGS (1)
  1. XIGDUO XR [Suspect]
     Active Substance: DAPAGLIFLOZIN PROPANEDIOL\METFORMIN HYDROCHLORIDE
     Dosage: UNKNOWN
     Route: 048

REACTIONS (8)
  - Inflammation [Unknown]
  - Thermal burn [Unknown]
  - Blister [Unknown]
  - Pain of skin [Unknown]
  - Dyspnoea [Unknown]
  - Genital disorder [Unknown]
  - Tachycardia [Unknown]
  - Burning sensation [Unknown]
